FAERS Safety Report 21161820 (Version 1)
Quarter: 2022Q3

REPORT INFORMATION
  Report Type: Spontaneous
  Country: US (occurrence: None)
  Receive Date: 20220802
  Receipt Date: 20220802
  Transmission Date: 20221026
  Serious: Yes (Other)
  Sender: FDA-Public Use
  Company Number: None

PATIENT
  Age: 49 Year
  Sex: Female
  Weight: 108 kg

DRUGS (1)
  1. MAGNESIUM CITRATE SALINE LAXATIVE [Suspect]
     Active Substance: MAGNESIUM CITRATE
     Indication: Abdominal pain upper
     Dosage: OTHER FREQUENCY : 12OZ OVER 10 DAYS;?
     Route: 048
     Dates: start: 20220721, end: 20220731

REACTIONS (4)
  - Abdominal pain [None]
  - Pyrexia [None]
  - Exposure via ingestion [None]
  - Bacterial infection [None]

NARRATIVE: CASE EVENT DATE: 20220721
